FAERS Safety Report 12076071 (Version 1)
Quarter: 2016Q1

REPORT INFORMATION
  Report Type: Spontaneous
  Country: US (occurrence: US)
  Receive Date: 20160215
  Receipt Date: 20160215
  Transmission Date: 20160526
  Serious: No
  Sender: FDA-Public Use
  Company Number: US-ASTRAZENECA-2016SE12775

PATIENT
  Age: 60 Year
  Sex: Male

DRUGS (1)
  1. SYMBICORT [Suspect]
     Active Substance: BUDESONIDE\FORMOTEROL FUMARATE DIHYDRATE
     Dosage: 160 4.5 MCG, 2 PUFFS, TWO TIMES A DAY
     Route: 055
     Dates: start: 20160203

REACTIONS (4)
  - Diabetes mellitus [Unknown]
  - Product quality issue [Unknown]
  - Oral discomfort [Unknown]
  - Gingival erosion [Unknown]

NARRATIVE: CASE EVENT DATE: 20160203
